FAERS Safety Report 14789577 (Version 1)
Quarter: 2018Q2

REPORT INFORMATION
  Report Type: Spontaneous
  Country: US (occurrence: US)
  Receive Date: 20180423
  Receipt Date: 20180423
  Transmission Date: 20180711
  Serious: No
  Sender: FDA-Public Use
  Company Number: US-TEVA-794763ACC

PATIENT
  Sex: Male

DRUGS (2)
  1. ZOLPIDEM EXTENDED RELEASE [Concomitant]
  2. ZOLPIDEM TARTRATE. [Suspect]
     Active Substance: ZOLPIDEM TARTRATE
     Indication: SLEEP DISORDER
     Dosage: NIGHTLY

REACTIONS (1)
  - Drug ineffective [Unknown]
